FAERS Safety Report 13798553 (Version 1)
Quarter: 2017Q3

REPORT INFORMATION
  Report Type: Spontaneous
  Country: JP (occurrence: JP)
  Receive Date: 20170727
  Receipt Date: 20170727
  Transmission Date: 20171127
  Serious: Yes (Life-Threatening)
  Sender: FDA-Public Use
  Company Number: JP-PFIZER INC-2139455

PATIENT
  Age: 31 Year
  Sex: Male
  Weight: 72 kg

DRUGS (4)
  1. LIDOCAINE. [Concomitant]
     Active Substance: LIDOCAINE
     Indication: ANALGESIC THERAPY
     Dosage: 1.5 ML, SUBMUCOSAL
     Route: 050
     Dates: start: 20131220, end: 20131220
  2. PRECEDEX [Suspect]
     Active Substance: DEXMEDETOMIDINE HYDROCHLORIDE
     Dosage: 6 MCG/KG/H
     Route: 042
     Dates: start: 20131220, end: 20131220
  3. PRECEDEX [Suspect]
     Active Substance: DEXMEDETOMIDINE HYDROCHLORIDE
     Dosage: 0.7 MCG/KG/H
     Route: 042
     Dates: start: 20131220, end: 20131220
  4. PRECEDEX [Suspect]
     Active Substance: DEXMEDETOMIDINE HYDROCHLORIDE
     Indication: SEDATIVE THERAPY
     Dosage: 0.5 MCG/KG/H
     Route: 042
     Dates: start: 20131220, end: 20131220

REACTIONS (1)
  - Glossoptosis [Recovered/Resolved]

NARRATIVE: CASE EVENT DATE: 20131220
